APPROVED DRUG PRODUCT: CLONAZEPAM
Active Ingredient: CLONAZEPAM
Strength: 1MG
Dosage Form/Route: TABLET;ORAL
Application: A075468 | Product #002 | TE Code: AB
Applicant: RUBICON RESEARCH LTD
Approved: Oct 6, 2000 | RLD: No | RS: No | Type: RX